FAERS Safety Report 18864923 (Version 6)
Quarter: 2021Q2

REPORT INFORMATION
  Report Type: Spontaneous
  Country: BR (occurrence: BR)
  Receive Date: 20210208
  Receipt Date: 20210614
  Transmission Date: 20210717
  Serious: Yes (Other)
  Sender: FDA-Public Use
  Company Number: BR-TAKEDA-2021TUS007522

PATIENT
  Age: 21 Year
  Sex: Male
  Weight: 67.12 kg

DRUGS (6)
  1. VENVANSE [Suspect]
     Active Substance: LISDEXAMFETAMINE DIMESYLATE
     Dosage: 70 MILLIGRAM
     Route: 048
     Dates: start: 20201228, end: 20210307
  2. VENVANSE [Suspect]
     Active Substance: LISDEXAMFETAMINE DIMESYLATE
     Dosage: 70 MILLIGRAM
     Route: 048
     Dates: start: 20201228
  3. VENVANSE [Suspect]
     Active Substance: LISDEXAMFETAMINE DIMESYLATE
     Indication: NARCOLEPSY
     Dosage: 30 MILLIGRAM
     Route: 048
     Dates: start: 202012
  4. VENVANSE [Suspect]
     Active Substance: LISDEXAMFETAMINE DIMESYLATE
     Dosage: 30 MILLIGRAM
     Route: 048
     Dates: start: 20201228
  5. ARGININE [Concomitant]
     Active Substance: ARGININE
     Indication: NARCOLEPSY
     Dosage: UNK
     Route: 065
     Dates: start: 20210107
  6. VENVANSE [Suspect]
     Active Substance: LISDEXAMFETAMINE DIMESYLATE
     Dosage: 70 MILLIGRAM
     Route: 048
     Dates: start: 202012

REACTIONS (19)
  - Dysstasia [Unknown]
  - Blood pressure increased [Unknown]
  - Irritability [Unknown]
  - Agitation [Unknown]
  - Migraine [Unknown]
  - Malaise [Unknown]
  - Product use in unapproved indication [Unknown]
  - Drug ineffective [Unknown]
  - Drug dependence [Unknown]
  - Chest pain [Unknown]
  - Adverse drug reaction [Unknown]
  - Somnolence [Unknown]
  - Restlessness [Unknown]
  - Wrong technique in product usage process [Unknown]
  - Narcolepsy [Unknown]
  - Poor quality sleep [Unknown]
  - Headache [Unknown]
  - Off label use [Unknown]
  - Dizziness [Unknown]

NARRATIVE: CASE EVENT DATE: 20210227
